FAERS Safety Report 17945749 (Version 1)
Quarter: 2020Q2

REPORT INFORMATION
  Report Type: Spontaneous
  Country: FR (occurrence: FR)
  Receive Date: 20200626
  Receipt Date: 20200626
  Transmission Date: 20200714
  Serious: Yes (Other)
  Sender: FDA-Public Use
  Company Number: FR-UCBSA-2020025304

PATIENT
  Age: 94 Year
  Sex: Female
  Weight: 48 kg

DRUGS (3)
  1. VIMPAT [Suspect]
     Active Substance: LACOSAMIDE
     Indication: EPILEPSY
     Dosage: 100 ML DAILY
     Route: 048
     Dates: start: 20200529, end: 20200531
  2. MAG 2 [MAGNESIUM PIDOLATE] [Suspect]
     Active Substance: MAGNESIUM PIDOLATE
     Indication: HYPOMAGNESAEMIA
     Dosage: 1 DOSAGE FORM DAILY
     Route: 048
     Dates: start: 20200529, end: 20200531
  3. SPECIAFOLDINE [Suspect]
     Active Substance: FOLIC ACID
     Indication: MALNUTRITION
     Dosage: 5 MG DAILY
     Route: 048
     Dates: start: 20200530, end: 20200531

REACTIONS (1)
  - Lip oedema [Recovered/Resolved]

NARRATIVE: CASE EVENT DATE: 20200531
